FAERS Safety Report 4871824-1 (Version None)
Quarter: 2006Q1

REPORT INFORMATION
  Report Type: 
  Country: None (occurrence: None)
  Receive Date: 20060104
  Receipt Date: 20051005
  Transmission Date: 20060701
  Serious: Yes (Hospitalization, Disabling)
  Sender: FDA-Public Use
  Company Number: US-MERCK-0510USA03311

PATIENT
  Age: 41 Year
  Sex: Male
  Weight: 84 kg

DRUGS (5)
  1. VIOXX [Suspect]
     Indication: INFLUENZA
     Route: 048
     Dates: start: 20000101, end: 20000101
  2. VIOXX [Suspect]
     Route: 048
     Dates: start: 20010101, end: 20010101
  3. VIOXX [Suspect]
     Indication: ARTHRALGIA
     Route: 048
     Dates: start: 20000101, end: 20000101
  4. VIOXX [Suspect]
     Route: 048
     Dates: start: 20010101, end: 20010101
  5. COUGH, COLD, AND FLU THERAPIES (UNSPECIFIED) [Concomitant]
     Route: 065

REACTIONS (2)
  - INFLUENZA [None]
  - MYOCARDIAL INFARCTION [None]
